FAERS Safety Report 7854190-9 (Version None)
Quarter: 2011Q4

REPORT INFORMATION
  Report Type: 
  Country: None (occurrence: None)
  Receive Date: 20111026
  Receipt Date: 20111012
  Transmission Date: 20120403
  Serious: No
  Sender: FDA-Public Use
  Company Number: US-B.I. PHARMACEUTICALS,INC./RIDGEFIELD-2011-BP-22434BP

PATIENT
  Sex: Female

DRUGS (8)
  1. SYMBICORT [Concomitant]
  2. LISINOPRIL AND HYDROCHLOROTHIAZIDE [Concomitant]
  3. SPIRIVA [Suspect]
     Indication: CHRONIC OBSTRUCTIVE PULMONARY DISEASE
     Dosage: 18 MCG
     Route: 055
     Dates: start: 20100901
  4. PROAIR HFA [Concomitant]
     Indication: CHRONIC OBSTRUCTIVE PULMONARY DISEASE
     Route: 055
  5. AMLOPINE BES [Concomitant]
  6. SPIRIVA [Suspect]
     Indication: LUNG DISORDER
  7. LISINOPRIL [Concomitant]
     Indication: HYPERTENSION
     Route: 048
  8. NORVASC [Concomitant]
     Indication: HYPERTENSION
     Route: 048

REACTIONS (5)
  - SENSATION OF HEAVINESS [None]
  - MALAISE [None]
  - CHEST DISCOMFORT [None]
  - WHEEZING [None]
  - DYSPNOEA [None]
